FAERS Safety Report 7345452-2 (Version None)
Quarter: 2011Q1

REPORT INFORMATION
  Report Type: 
  Country: None (occurrence: None)
  Receive Date: 20110310
  Receipt Date: 20110303
  Transmission Date: 20110831
  Serious: Yes (Life-Threatening, Hospitalization, Other)
  Sender: FDA-Public Use
  Company Number: GB-PFIZER INC-GBWYE106302NOV05

PATIENT
  Age: 43 Year
  Sex: Male

DRUGS (8)
  1. PERINDOPRIL [Suspect]
     Dosage: 120 MG, UNK
     Route: 048
  2. AMLODIPINE BESYLATE [Suspect]
     Dosage: 560 MG, UNK
     Route: 048
  3. FOLIC ACID [Suspect]
     Dosage: 30 DF, UNK
     Route: 048
  4. FLUOXETINE [Suspect]
     Dosage: 600 MG, UNK
     Route: 048
  5. CITALOPRAM [Suspect]
     Dosage: 280 MG, UNK
     Route: 048
  6. PARACETAMOL [Suspect]
     Dosage: 16 G, UNK
     Route: 048
  7. ACETYLSALICYLIC ACID [Suspect]
     Dosage: 7.5 G, UNK
     Route: 048
  8. ETHANOL [Suspect]
     Dosage: ONE BOTTLE (AMOUNT UNKNOWN)
     Route: 048

REACTIONS (7)
  - METABOLIC ACIDOSIS [None]
  - COMA SCALE ABNORMAL [None]
  - DEPRESSED LEVEL OF CONSCIOUSNESS [None]
  - HYPOKALAEMIA [None]
  - INTENTIONAL OVERDOSE [None]
  - HYPOTENSION [None]
  - URINE OUTPUT DECREASED [None]
